FAERS Safety Report 13585211 (Version 2)
Quarter: 2017Q3

REPORT INFORMATION
  Report Type: Spontaneous
  Country: BR (occurrence: BR)
  Receive Date: 20170526
  Receipt Date: 20170713
  Transmission Date: 20171127
  Serious: Yes (Death, Hospitalization)
  Sender: FDA-Public Use
  Company Number: BR-PFIZER INC-2017139729

PATIENT
  Age: 60 Year
  Sex: Female

DRUGS (1)
  1. SUTENT [Suspect]
     Active Substance: SUNITINIB MALATE
     Dosage: 50 MG, CYCLIC (CONTINUOUS USE, 1 CAPSULE DAILY FOR 2 WEEKS AND REST 1 WEEK)
     Route: 048
     Dates: start: 20170412

REACTIONS (5)
  - Impaired self-care [Unknown]
  - Pleural effusion [Not Recovered/Not Resolved]
  - General physical health deterioration [Unknown]
  - Infection [Fatal]
  - Nausea [Unknown]

NARRATIVE: CASE EVENT DATE: 201705
